FAERS Safety Report 11566318 (Version 1)
Quarter: 2015Q3

REPORT INFORMATION
  Report Type: Spontaneous
  Country: US (occurrence: US)
  Receive Date: 20150916
  Receipt Date: 20150916
  Transmission Date: 20151125
  Serious: No
  Sender: FDA-Public Use
  Company Number: US-ELI_LILLY_AND_COMPANY-US200906000078

PATIENT
  Age: 86 Year
  Sex: Female

DRUGS (7)
  1. FORTEO [Suspect]
     Active Substance: TERIPARATIDE
     Dosage: 20 UG, DAILY (1/D)
     Dates: start: 2007
  2. CORAL /00188401/ [Concomitant]
  3. PROTONIX [Concomitant]
     Active Substance: PANTOPRAZOLE SODIUM
  4. ZOCOR [Concomitant]
     Active Substance: SIMVASTATIN
  5. XANAX [Concomitant]
     Active Substance: ALPRAZOLAM
  6. MICARDIS [Concomitant]
     Active Substance: TELMISARTAN
     Dosage: 40 MG, UNK
  7. CLONIDINE. [Concomitant]
     Active Substance: CLONIDINE

REACTIONS (8)
  - Lung infiltration [Unknown]
  - Hearing impaired [Not Recovered/Not Resolved]
  - Constipation [Recovered/Resolved]
  - Multiple allergies [Not Recovered/Not Resolved]
  - Pneumonia [Unknown]
  - Confusional state [Not Recovered/Not Resolved]
  - Muscle spasms [Not Recovered/Not Resolved]
  - Influenza like illness [Unknown]

NARRATIVE: CASE EVENT DATE: 200903
